FAERS Safety Report 9828022 (Version 1)
Quarter: 2014Q1

REPORT INFORMATION
  Report Type: Spontaneous
  Country: US (occurrence: None)
  Receive Date: 20140116
  Receipt Date: 20140116
  Transmission Date: 20141002
  Serious: Yes (Hospitalization)
  Sender: FDA-Public Use
  Company Number: None

PATIENT
  Age: 87 Year
  Sex: Male
  Weight: 103.6 kg

DRUGS (2)
  1. TERAZOSIN [Suspect]
     Indication: BENIGN PROSTATIC HYPERPLASIA
     Route: 048
     Dates: start: 20120827, end: 20131021
  2. GABAPENTIN [Suspect]
     Indication: PAIN
     Route: 048
     Dates: start: 20131010

REACTIONS (5)
  - Asthenia [None]
  - Fall [None]
  - Dizziness [None]
  - Orthostatic hypotension [None]
  - Hypotension [None]
